FAERS Safety Report 5943368-7 (Version None)
Quarter: 2008Q4

REPORT INFORMATION
  Report Type: 
  Country: None (occurrence: None)
  Receive Date: 20081106
  Receipt Date: 20080418
  Transmission Date: 20090506
  Serious: Yes (Hospitalization, Disabling)
  Sender: FDA-Public Use
  Company Number: FR-ROCHE-560192

PATIENT
  Sex: Female
  Weight: 46 kg

DRUGS (4)
  1. NAPROXEN SODIUM [Suspect]
     Route: 048
     Dates: start: 20010927
  2. SOMATROPIN [Suspect]
     Route: 058
     Dates: start: 20010927, end: 20060731
  3. CORTANCYL [Suspect]
     Route: 048
     Dates: start: 20030823, end: 20060731
  4. ENBREL [Suspect]
     Dosage: FREQUENCY REPORTED : X 2 WEEK
     Route: 058
     Dates: start: 20030815

REACTIONS (1)
  - OSTEONECROSIS [None]
